FAERS Safety Report 4370451-2 (Version None)
Quarter: 2004Q2

REPORT INFORMATION
  Report Type: 
  Country: None (occurrence: None)
  Receive Date: 20040603
  Receipt Date: 20031216
  Transmission Date: 20050107
  Serious: No
  Sender: FDA-Public Use
  Company Number: US-BRISTOL-MYERS SQUIBB COMPANY-12459178

PATIENT
  Age: 34 Year
  Sex: Female

DRUGS (6)
  1. ABILIFY [Suspect]
     Indication: PSYCHOTIC DISORDER
     Dosage: INCREASED TO 22 MG/DAY, 30 MG/DAY, DECREASED TO 15 MG/DAY
     Route: 048
     Dates: start: 20030401
  2. ABILIFY [Suspect]
     Indication: HALLUCINATION
     Dosage: INCREASED TO 22 MG/DAY, 30 MG/DAY, DECREASED TO 15 MG/DAY
     Route: 048
     Dates: start: 20030401
  3. ABILIFY [Suspect]
     Indication: SCHIZOAFFECTIVE DISORDER
     Dosage: INCREASED TO 22 MG/DAY, 30 MG/DAY, DECREASED TO 15 MG/DAY
     Route: 048
     Dates: start: 20030401
  4. LEXAPRO [Concomitant]
  5. RISPERDAL [Concomitant]
     Dosage: RESTARTED AT 1.5 MG ONE TABLET PER DAY.
     Route: 048
     Dates: start: 20031001, end: 20031213
  6. ZOLOFT [Concomitant]

REACTIONS (4)
  - CHEST PAIN [None]
  - HALLUCINATION [None]
  - PALPITATIONS [None]
  - PSYCHOTIC DISORDER [None]
